FAERS Safety Report 10460284 (Version 2)
Quarter: 2014Q3

REPORT INFORMATION
  Report Type: Spontaneous
  Country: FI (occurrence: FI)
  Receive Date: 20140917
  Receipt Date: 20140919
  Transmission Date: 20150326
  Serious: Yes (Other)
  Sender: FDA-Public Use
  Company Number: FI-PFIZER INC-2014254318

PATIENT
  Age: 45 Year
  Sex: Male

DRUGS (3)
  1. LYRICA [Suspect]
     Active Substance: PREGABALIN
     Dosage: 75 MG, 1X/DAY
     Route: 048
     Dates: end: 20140604
  2. LYRICA [Suspect]
     Active Substance: PREGABALIN
     Indication: ANXIETY
     Dosage: 25 MG, 1X/DAY
     Route: 048
     Dates: start: 201401, end: 2014
  3. LYRICA [Suspect]
     Active Substance: PREGABALIN
     Dosage: 150 MG, 1X/DAY
     Route: 048
     Dates: start: 20140605, end: 201407

REACTIONS (2)
  - Vitreous detachment [Not Recovered/Not Resolved]
  - Retinoschisis [Not Recovered/Not Resolved]

NARRATIVE: CASE EVENT DATE: 2014
